FAERS Safety Report 4829664-5 (Version None)
Quarter: 2005Q4

REPORT INFORMATION
  Report Type: 
  Country: None (occurrence: None)
  Receive Date: 20051116
  Receipt Date: 20050929
  Transmission Date: 20060501
  Serious: Yes (Death, Hospitalization, Disabling)
  Sender: FDA-Public Use
  Company Number: US-MERCK-0510USA00292

PATIENT
  Age: 51 Year
  Sex: Female
  Weight: 91 kg

DRUGS (3)
  1. VIOXX [Suspect]
     Indication: ARTHRITIS
     Route: 048
     Dates: start: 20000301, end: 20010308
  2. PREVACID [Concomitant]
     Route: 048
  3. PROTONIX [Concomitant]
     Route: 048

REACTIONS (7)
  - CEREBROVASCULAR ACCIDENT [None]
  - CLOSTRIDIUM COLITIS [None]
  - DIVERTICULITIS [None]
  - HYPOALBUMINAEMIA [None]
  - HYPOVOLAEMIA [None]
  - MALNUTRITION [None]
  - RENAL FAILURE [None]
